FAERS Safety Report 15030753 (Version 6)
Quarter: 2018Q4

REPORT INFORMATION
  Report Type: Spontaneous
  Country: US (occurrence: US)
  Receive Date: 20180619
  Receipt Date: 20181128
  Transmission Date: 20190204
  Serious: No
  Sender: FDA-Public Use
  Company Number: US-TAKEDA-2018MPI007878

PATIENT
  Age: 71 Year
  Sex: Female

DRUGS (18)
  1. ASPIRIN CHILDREN [Concomitant]
     Active Substance: ASPIRIN
  2. CAPSAICIN. [Concomitant]
     Active Substance: CAPSAICIN
  3. VITAMIN B12 [Concomitant]
     Active Substance: CYANOCOBALAMIN
  4. COENZYME Q10 [Concomitant]
     Active Substance: UBIDECARENONE
  5. TYLENOL [Concomitant]
     Active Substance: ACETAMINOPHEN
  6. ERYTHROMYCIN BASE [Concomitant]
     Active Substance: ERYTHROMYCIN
  7. IBUPROFEN. [Concomitant]
     Active Substance: IBUPROFEN
     Dosage: UNK
  8. MEGESTROL ACETATE. [Concomitant]
     Active Substance: MEGESTROL ACETATE
  9. VOLTAREN [Concomitant]
     Active Substance: DICLOFENAC SODIUM
  10. ACETAMINOPHEN. [Concomitant]
     Active Substance: ACETAMINOPHEN
  11. MYLANTA [Concomitant]
     Active Substance: ALUMINUM HYDROXIDE\DIMETHICONE\MAGNESIUM HYDROXIDE
  12. ZOMETA [Concomitant]
     Active Substance: ZOLEDRONIC ACID
  13. ANTI ITCH                          /00622802/ [Concomitant]
  14. NINLARO [Suspect]
     Active Substance: IXAZOMIB CITRATE
     Indication: PLASMA CELL MYELOMA
     Dosage: 2.3 MG, UNK
     Route: 048
     Dates: start: 20141003
  15. CLONAZEPAM. [Concomitant]
     Active Substance: CLONAZEPAM
  16. TRIPLE ANTIBIOTIC PLUS [Concomitant]
     Active Substance: BACITRACIN ZINC\NEOMYCIN\POLYMYXIN B SULFATE\PRAMOXINE HYDROCHLORIDE
  17. VITAMIN E                          /00110501/ [Concomitant]
     Active Substance: TOCOPHEROL
  18. GUAIFENESIN. [Concomitant]
     Active Substance: GUAIFENESIN

REACTIONS (10)
  - Neck pain [Unknown]
  - Musculoskeletal chest pain [Unknown]
  - Spinal pain [Unknown]
  - Musculoskeletal pain [Unknown]
  - Decreased appetite [Not Recovered/Not Resolved]
  - Bone pain [Not Recovered/Not Resolved]
  - Back pain [Unknown]
  - Secretion discharge [Not Recovered/Not Resolved]
  - Ear pruritus [Not Recovered/Not Resolved]
  - Asthenia [Unknown]

NARRATIVE: CASE EVENT DATE: 20180705
